FAERS Safety Report 15473136 (Version 1)
Quarter: 2018Q4

REPORT INFORMATION
  Report Type: Report from Study
  Country: US (occurrence: US)
  Receive Date: 20181008
  Receipt Date: 20181008
  Transmission Date: 20190205
  Serious: Yes (Death, Other)
  Sender: FDA-Public Use
  Company Number: US-ACCORD-073077

PATIENT

DRUGS (6)
  1. ETOPOSIDE. [Suspect]
     Active Substance: ETOPOSIDE
     Indication: LYMPHOMA
     Dosage: ON DAY -5 TO -2 TOTAL DOSE 800 MG/M2
  2. TACROLIMUS. [Concomitant]
     Active Substance: TACROLIMUS
     Indication: PROPHYLAXIS AGAINST GRAFT VERSUS HOST DISEASE
     Dosage: STARTED ON DAY -3
     Route: 042
  3. CYTARABINE/CYTARABINE HYDROCHLORIDE/CYTARABINE OCFOSFATE [Suspect]
     Active Substance: CYTARABINE
     Indication: LYMPHOMA
     Dosage: ON DAYS -5 TO -2 (TOTAL DOSE OF 1600 MG/M2)?)
  4. CARMUSTINE. [Suspect]
     Active Substance: CARMUSTINE
     Indication: LYMPHOMA
     Dosage: ON DAY -6
  5. SIROLIMUS. [Concomitant]
     Active Substance: SIROLIMUS
     Indication: PROPHYLAXIS AGAINST GRAFT VERSUS HOST DISEASE
     Dosage: LOADING DOSE ON DAY -3, FOLLOWED BY 4 MG ORAL DAILY.
     Route: 048
  6. MELPHALAN. [Suspect]
     Active Substance: MELPHALAN
     Indication: LYMPHOMA
     Dosage: ON DAY -1.

REACTIONS (1)
  - Pulmonary toxicity [Fatal]
